FAERS Safety Report 14476328 (Version 7)
Quarter: 2019Q4

REPORT INFORMATION
  Report Type: Spontaneous
  Country: US (occurrence: US)
  Receive Date: 20180201
  Receipt Date: 20191028
  Transmission Date: 20200122
  Serious: No
  Sender: FDA-Public Use
  Company Number: US-SA-2017SA213229

PATIENT
  Age: 54 Year
  Sex: Female

DRUGS (2)
  1. PRALUENT [Suspect]
     Active Substance: ALIROCUMAB
     Indication: CORONARY ARTERY DISEASE
     Dosage: 150 MG,QOW
     Route: 058
     Dates: start: 20171003
  2. PRALUENT [Suspect]
     Active Substance: ALIROCUMAB
     Indication: TYPE V HYPERLIPIDAEMIA
     Dosage: 75 MG,QOW
     Route: 058
     Dates: start: 201701

REACTIONS (7)
  - Arthralgia [Unknown]
  - Influenza like illness [Unknown]
  - Urinary tract infection [Not Recovered/Not Resolved]
  - Nasopharyngitis [Not Recovered/Not Resolved]
  - Upper respiratory tract infection [Unknown]
  - Myalgia [Unknown]
  - Sneezing [Unknown]

NARRATIVE: CASE EVENT DATE: 2017
